FAERS Safety Report 19204417 (Version 1)
Quarter: 2021Q2

REPORT INFORMATION
  Report Type: Spontaneous
  Country: US (occurrence: US)
  Receive Date: 20210503
  Receipt Date: 20210503
  Transmission Date: 20210717
  Serious: No
  Sender: FDA-Public Use
  Company Number: US-SA-2021SA143366

PATIENT
  Age: 59 Year
  Sex: Female

DRUGS (2)
  1. COVID?19 VACCINE NOS. [Suspect]
     Active Substance: COVID-19 VACCINE NOS
     Indication: COVID-19
     Dates: start: 20210215
  2. DUPIXENT [Suspect]
     Active Substance: DUPILUMAB
     Dosage: 300 MG / 2 ML PFS 2^S 1 SYRINGE (300 MG)
     Route: 058
     Dates: start: 202003

REACTIONS (2)
  - Chills [Recovered/Resolved]
  - Influenza like illness [Recovered/Resolved]

NARRATIVE: CASE EVENT DATE: 20210309
